FAERS Safety Report 16612032 (Version 1)
Quarter: 2019Q3

REPORT INFORMATION
  Report Type: Spontaneous
  Country: DE (occurrence: DE)
  Receive Date: 20190722
  Receipt Date: 20190722
  Transmission Date: 20191004
  Serious: Yes (Hospitalization)
  Sender: FDA-Public Use
  Company Number: DE-ELI_LILLY_AND_COMPANY-DE201907005693

PATIENT
  Age: 54 Year
  Sex: Female
  Weight: 55 kg

DRUGS (15)
  1. PANTOPRAZOL [PANTOPRAZOLE] [Concomitant]
     Active Substance: PANTOPRAZOLE
     Dosage: 40 MG, 1-0-1-0, TABLETTEN
     Route: 048
  2. METOCLOPRAMID [METOCLOPRAMIDE] [Concomitant]
     Active Substance: METOCLOPRAMIDE
     Dosage: 10 MG, 1-1-1-0, TABLETTEN
     Route: 048
  3. FOLSAEURE [Concomitant]
     Active Substance: FOLIC ACID
     Dosage: 0.4 MG, 1-0-0-0, TABLETTEN
     Route: 048
  4. ZOMETA [Concomitant]
     Active Substance: ZOLEDRONIC ACID
     Dosage: 4 MG, ALLE 4 WOCHEN, INJEKTIONS-/INFUSIONSL?SUNG
     Route: 058
  5. EFFENTORA [Concomitant]
     Active Substance: FENTANYL CITRATE
     Dosage: 100 ?G, BEI BEDARF, SCHMELZTABLETTEN
     Route: 048
  6. COLECALCIFEROL [Concomitant]
     Active Substance: CHOLECALCIFEROL
     Dosage: 20000 IE, 1X W?CHENTLICH, TABLETTEN
     Route: 048
  7. KALIUM [POTASSIUM] [Concomitant]
     Dosage: 8 MVAL, 2-0-0-0, KAPSELN
     Route: 048
  8. OLANZAPIN [Concomitant]
     Active Substance: OLANZAPINE
     Dosage: 5 MG, 1-0-0-0, TABLETTEN
     Route: 048
  9. ENOXAPARIN [Concomitant]
     Active Substance: ENOXAPARIN
     Dosage: 0.6 ML, 1-0-1-0, INJEKTIONS-/INFUSIONSL?SUNG
     Route: 058
  10. SIMVASTATIN. [Concomitant]
     Active Substance: SIMVASTATIN
     Dosage: 40 MG, 0-0-1-0, TABLETTEN
     Route: 048
  11. FENTANYL. [Concomitant]
     Active Substance: FENTANYL
     Dosage: 75 ?G/H, ALLE 3 TAGE, PFLASTER TRANSDERMAL
     Route: 062
  12. CALCIUM [Concomitant]
     Active Substance: CALCIUM
     Dosage: 500 MG, 1-0-0-0, TABLETTEN
     Route: 048
  13. HYDROXOCOBALAMIN [Concomitant]
     Active Substance: HYDROXOCOBALAMIN
     Dosage: 1000 ?G, ALLE 9 WOCHEN, KAPSELN
     Route: 048
  14. ACETYLSALICYLSAEURE [Concomitant]
     Active Substance: ASPIRIN
     Dosage: 100 MG, 0-0-1-0, TABLETTEN
     Route: 048
  15. PEMETREXED. [Suspect]
     Active Substance: PEMETREXED
     Indication: PRODUCT USED FOR UNKNOWN INDICATION
     Dosage: 500 MG/M2, UNKNOWN
     Route: 042

REACTIONS (2)
  - Dyspnoea [Unknown]
  - Anaemia [Unknown]
